FAERS Safety Report 7080068-7 (Version None)
Quarter: 2010Q4

REPORT INFORMATION
  Report Type: 
  Country: None (occurrence: None)
  Receive Date: 20101102
  Receipt Date: 20101026
  Transmission Date: 20110411
  Serious: Yes (Other)
  Sender: FDA-Public Use
  Company Number: US-PFIZER INC-2010137026

PATIENT
  Sex: Female
  Weight: 149 kg

DRUGS (10)
  1. CHANTIX [Suspect]
     Indication: SMOKING CESSATION THERAPY
     Dosage: 1 MG, 2X/DAY
     Route: 048
     Dates: start: 20100101, end: 20100301
  2. SEROQUEL [Concomitant]
     Dosage: 400 MG, UNK
  3. EFFEXOR XR [Concomitant]
     Dosage: 300 MG, DAILY
  4. NEXIUM [Concomitant]
     Dosage: 40 MG, DAILY
  5. METFORMIN [Concomitant]
     Dosage: 500 MG, 2X/DAY
  6. MELOXICAM [Concomitant]
     Dosage: 15 MG, DAILY
  7. LISINOPRIL AND HYDROCHLOROTHIAZIDE [Concomitant]
     Dosage: 20MG/12.5 MG , UNK
  8. DARIFENACIN [Concomitant]
     Dosage: 75 MG, DAILY
  9. KLONOPIN [Concomitant]
     Dosage: 1 MG, DAILY
  10. ALBUTEROL [Concomitant]
     Indication: ASTHMA
     Dosage: UNK, AS NEEDED

REACTIONS (2)
  - GLOSSODYNIA [None]
  - TONGUE DISORDER [None]
